FAERS Safety Report 11419743 (Version 1)
Quarter: 2015Q3

REPORT INFORMATION
  Report Type: Spontaneous
  Country: US (occurrence: None)
  Receive Date: 20150825
  Receipt Date: 20150825
  Transmission Date: 20151125
  Serious: Yes (Other)
  Sender: FDA-Public Use
  Company Number: None

PATIENT
  Age: 45 Year
  Sex: Female
  Weight: 113.4 kg

DRUGS (5)
  1. NALTREXONE 50MG [Suspect]
     Active Substance: NALTREXONE
     Indication: AUTOIMMUNE THYROIDITIS
     Route: 048
     Dates: start: 20150822, end: 20150822
  2. VENLAFAXINE ER [Concomitant]
     Active Substance: VENLAFAXINE HYDROCHLORIDE
  3. LEVOTHYROXINE. [Concomitant]
     Active Substance: LEVOTHYROXINE
  4. CYTOMEL [Concomitant]
     Active Substance: LIOTHYRONINE SODIUM
  5. KLONOPIN [Concomitant]
     Active Substance: CLONAZEPAM

REACTIONS (8)
  - Local swelling [None]
  - Disorientation [None]
  - Mental impairment [None]
  - Nausea [None]
  - Speech disorder [None]
  - Dysphagia [None]
  - Confusional state [None]
  - Anxiety [None]

NARRATIVE: CASE EVENT DATE: 20150822
